FAERS Safety Report 8891098 (Version 3)
Quarter: 2012Q4

REPORT INFORMATION
  Report Type: Report from Study
  Country: JP (occurrence: JP)
  Receive Date: 20121107
  Receipt Date: 20121226
  Transmission Date: 20130627
  Serious: Yes (Hospitalization)
  Sender: FDA-Public Use
  Company Number: JP-VERTEX PHARMACEUTICAL INC.-2012-024170

PATIENT
  Age: 63 Year
  Sex: Female

DRUGS (14)
  1. VX-950 (TELAPREVIR) [Suspect]
     Indication: CHRONIC HEPATITIS C
     Dosage: 1500 mg, qd
     Route: 048
     Dates: start: 20120907, end: 20121005
  2. PEGINTERFERON ALFA-2B [Suspect]
     Indication: CHRONIC HEPATITIS C
     Dosage: 1.5 ?g/kg, qw
     Route: 058
     Dates: start: 20120907
  3. RIBAVIRIN [Suspect]
     Indication: CHRONIC HEPATITIS C
     Dosage: 600 mg, qd
     Route: 048
     Dates: start: 20120907, end: 20120925
  4. RIBAVIRIN [Suspect]
     Dosage: 400 mg, qd
     Route: 048
     Dates: start: 20120926, end: 20121115
  5. RIBAVIRIN [Suspect]
     Dosage: 200 mg, qd
     Route: 048
     Dates: start: 20121116
  6. ALLOPURINOL [Suspect]
     Indication: ADVERSE EVENT
     Dosage: 200 mg, qd
     Route: 048
     Dates: start: 20120910, end: 20121023
  7. AZUNOL                             /00317302/ [Concomitant]
     Dosage: UNK UNK, prn
     Route: 051
     Dates: start: 20121006
  8. TAKEPRON [Concomitant]
     Dosage: 30 mg, qd
     Route: 048
     Dates: start: 20121006, end: 20121108
  9. DIOVAN [Concomitant]
     Dosage: 80 mg, qd
     Route: 048
  10. VANARL N [Concomitant]
     Dosage: 200 mg, qd
     Route: 048
     Dates: end: 20121018
  11. AMLODIPINE [Concomitant]
     Dosage: 5 mg, qd
     Route: 048
  12. JUVELA N [Concomitant]
     Dosage: 200 mg, qd
     Route: 048
     Dates: start: 20121019
  13. HIRUDOID                           /00723701/ [Concomitant]
     Dosage: 25g/ tube
     Route: 061
     Dates: start: 20121022
  14. CRAVIT [Concomitant]
     Dosage: 5mL/ bottle
     Route: 031
     Dates: start: 20121105

REACTIONS (1)
  - Rash [Not Recovered/Not Resolved]
